APPROVED DRUG PRODUCT: PYRIMETHAMINE
Active Ingredient: PYRIMETHAMINE
Strength: 25MG
Dosage Form/Route: TABLET;ORAL
Application: A215506 | Product #001 | TE Code: AB
Applicant: TEVA PHARMACEUTICALS DEVELOPMENT INC
Approved: Aug 13, 2021 | RLD: No | RS: No | Type: RX